FAERS Safety Report 17171347 (Version 1)
Quarter: 2019Q4

REPORT INFORMATION
  Report Type: Spontaneous
  Country: US (occurrence: US)
  Receive Date: 20191218
  Receipt Date: 20191218
  Transmission Date: 20200122
  Serious: No
  Sender: FDA-Public Use
  Company Number: US-SUPERNUS PHARMACEUTICALS, INC.-2019SUP00068

PATIENT
  Age: 48 Year
  Sex: Female
  Weight: 87.98 kg

DRUGS (6)
  1. TROKENDI XR [Suspect]
     Active Substance: TOPIRAMATE
     Indication: MIGRAINE
     Dosage: 100 MG
     Dates: end: 20180816
  2. XELJANZ [Suspect]
     Active Substance: TOFACITINIB CITRATE
     Indication: RHEUMATOID ARTHRITIS
     Dosage: 5 MG, 2X/DAY
     Route: 048
     Dates: start: 2015, end: 20170726
  3. TROKENDI XR [Suspect]
     Active Substance: TOPIRAMATE
     Dosage: 100 MG
     Dates: start: 201708
  4. UNSPECIFIED MEDICATION [Concomitant]
     Active Substance: UNSPECIFIED INGREDIENT
     Indication: MIGRAINE
     Dosage: UNK, EVERY 3 MONTHS
     Dates: start: 2012
  5. UNSPECIFIED MEDICATIONS [Concomitant]
     Active Substance: UNSPECIFIED INGREDIENT
  6. XELJANZ [Suspect]
     Active Substance: TOFACITINIB CITRATE
     Dosage: 5 MG, 2X/DAY
     Route: 048
     Dates: start: 201707, end: 201708

REACTIONS (11)
  - Product dose omission [Recovered/Resolved]
  - Nausea [Recovered/Resolved]
  - Spinal disorder [Unknown]
  - Pain [Not Recovered/Not Resolved]
  - Tremor [Recovered/Resolved]
  - Withdrawal syndrome [Recovered/Resolved]
  - Arthritis [Not Recovered/Not Resolved]
  - Electrocardiogram abnormal [Unknown]
  - Arthralgia [Unknown]
  - Performance status decreased [Unknown]
  - Abdominal pain upper [Recovered/Resolved]

NARRATIVE: CASE EVENT DATE: 2017
